FAERS Safety Report 7002872-3 (Version None)
Quarter: 2010Q3

REPORT INFORMATION
  Report Type: 
  Country: None (occurrence: None)
  Receive Date: 20100920
  Receipt Date: 20091218
  Transmission Date: 20110219
  Serious: No
  Sender: FDA-Public Use
  Company Number: US-ASTRAZENECA-2009SE32900

PATIENT
  Age: 43 Year
  Sex: Female

DRUGS (4)
  1. SEROQUEL XR [Suspect]
     Route: 048
  2. PROZAC [Concomitant]
  3. TOPAMAX [Concomitant]
  4. LAMICTAL [Concomitant]

REACTIONS (1)
  - ALOPECIA [None]
